FAERS Safety Report 5369120-1 (Version None)
Quarter: 2007Q2

REPORT INFORMATION
  Report Type: 
  Country: None (occurrence: None)
  Receive Date: 20070625
  Receipt Date: 20070108
  Transmission Date: 20071010
  Serious: Yes (Other)
  Sender: FDA-Public Use
  Company Number: US-ASTRAZENECA-2007UW00947

PATIENT
  Age: 56 Year
  Sex: Female

DRUGS (15)
  1. CRESTOR [Suspect]
     Indication: HYPERLIPIDAEMIA
     Route: 048
     Dates: start: 20050727, end: 20060725
  2. ABT-335 (LEAD IN) [Suspect]
     Indication: DYSLIPIDAEMIA
  3. AMITRIPTYLINE HCL [Concomitant]
     Indication: DEPRESSION
     Dates: start: 20060726
  4. ROSIGLITAZONE MALEATE [Concomitant]
     Indication: DIABETES MELLITUS
     Dates: start: 20060726
  5. CENTRUM [Concomitant]
     Indication: MEDICAL DIET
     Route: 048
     Dates: start: 20020329
  6. ESTRATEST [Concomitant]
     Indication: POSTMENOPAUSE
     Dosage: 1.25-2.5 MG
     Dates: start: 20020329, end: 20060906
  7. HYOSCYAMINE SULFATE [Concomitant]
     Indication: GASTROOESOPHAGEAL REFLUX DISEASE
     Dates: start: 20060726
  8. METFORMIN HCL [Concomitant]
     Indication: DIABETES MELLITUS
     Dates: start: 20060726
  9. NITROGLYCERIN [Concomitant]
     Indication: ANGINA PECTORIS
     Dates: start: 20050727
  10. LANSOPRAZOLE [Concomitant]
     Indication: GASTROOESOPHAGEAL REFLUX DISEASE
     Dates: start: 20020329
  11. FLUOXETINE HYDROCHLORIDE [Concomitant]
     Indication: DEPRESSION
     Dates: start: 20050727
  12. METAXALONE [Concomitant]
     Indication: FIBROMYALGIA
     Dates: start: 20060726
  13. METOPROLOL SUCCINATE [Concomitant]
     Indication: HYPERTENSION
     Dates: start: 20060726
  14. ENALAPRIL MALEATE [Concomitant]
     Indication: HYPERTENSION
     Dates: start: 20060726, end: 20060901
  15. RANITIDINE HYDROCHLORIDE [Concomitant]
     Indication: GASTROOESOPHAGEAL REFLUX DISEASE
     Dates: start: 20050727

REACTIONS (1)
  - NON-CARDIAC CHEST PAIN [None]
